FAERS Safety Report 5737811-6 (Version None)
Quarter: 2008Q2

REPORT INFORMATION
  Report Type: 
  Country: None (occurrence: None)
  Receive Date: 20080514
  Receipt Date: 20080507
  Transmission Date: 20081010
  Serious: Yes (Life-Threatening)
  Sender: FDA-Public Use
  Company Number: US-MERCK-0805USA01293

PATIENT
  Age: 58 Year
  Sex: Female

DRUGS (8)
  1. VYTORIN [Suspect]
     Indication: BLOOD CHOLESTEROL INCREASED
     Route: 048
     Dates: start: 20070101
  2. TRICOR [Concomitant]
     Route: 065
  3. ACTOS [Concomitant]
     Route: 065
  4. MEVACOR [Concomitant]
     Route: 048
  5. FLEXERIL [Concomitant]
     Route: 048
  6. METFORMIN [Concomitant]
     Route: 065
  7. COREG [Concomitant]
     Route: 065
  8. AVAPRO [Concomitant]
     Route: 065

REACTIONS (4)
  - FATIGUE [None]
  - HAEMATURIA [None]
  - HEPATIC STEATOSIS [None]
  - MUSCLE SPASMS [None]
